FAERS Safety Report 9099476 (Version 1)
Quarter: 2013Q1

REPORT INFORMATION
  Report Type: Other
  Country: GB (occurrence: GB)
  Receive Date: 20130214
  Receipt Date: 20130214
  Transmission Date: 20140127
  Serious: Yes (Other)
  Sender: FDA-Public Use
  Company Number: GB-WATSON-2013-02287

PATIENT
  Age: 53 Year
  Sex: Female

DRUGS (1)
  1. TERBINAFINE HYDROCHLORIDE (UNKNOWN) [Suspect]
     Indication: ONYCHOMYCOSIS
     Dosage: 250 MG, DAILY
     Route: 048
     Dates: start: 20120808, end: 20120826

REACTIONS (4)
  - Rash generalised [Recovered/Resolved]
  - Malaise [Unknown]
  - Liver function test abnormal [Unknown]
  - Blood test abnormal [Unknown]
